FAERS Safety Report 7488890-X (Version None)
Quarter: 2011Q2

REPORT INFORMATION
  Report Type: 
  Country: None (occurrence: None)
  Receive Date: 20110518
  Receipt Date: 20110510
  Transmission Date: 20111010
  Serious: Yes (Other)
  Sender: FDA-Public Use
  Company Number: PHHY2011GB38800

PATIENT
  Age: 45 Year
  Sex: Female
  Weight: 98 kg

DRUGS (4)
  1. FLUOROURACIL [Suspect]
     Indication: BREAST CANCER
     Dosage: 1200 MG, UNK
     Route: 051
     Dates: start: 20100825, end: 20101208
  2. EPIRUBICIN [Suspect]
     Indication: BREAST CANCER
     Dosage: 150 MG, UNK
     Route: 051
     Dates: start: 20100825, end: 20101208
  3. HERCEPTIN [Suspect]
     Dosage: UNK
     Route: 051
     Dates: start: 20110206, end: 20110331
  4. CYCLOPHOSPHAMIDE [Suspect]
     Indication: BREAST CANCER
     Dosage: 1200 MG, UNK
     Route: 051
     Dates: start: 20100825, end: 20101208

REACTIONS (3)
  - CARDIAC FAILURE [None]
  - LEFT VENTRICULAR DYSFUNCTION [None]
  - EJECTION FRACTION DECREASED [None]
